FAERS Safety Report 7424552-2 (Version None)
Quarter: 2011Q2

REPORT INFORMATION
  Report Type: 
  Country: None (occurrence: None)
  Receive Date: 20110411
  Receipt Date: 20110408
  Transmission Date: 20111010
  Serious: Yes (Hospitalization)
  Sender: FDA-Public Use
  Company Number: AE-411-113

PATIENT
  Sex: Female

DRUGS (2)
  1. PERCOCET [Suspect]
  2. LIDODERM [Suspect]
     Dosage: 30 PATCHES

REACTIONS (2)
  - MENTAL STATUS CHANGES [None]
  - INCORRECT DOSE ADMINISTERED [None]
